FAERS Safety Report 7712274-X (Version None)
Quarter: 2011Q3

REPORT INFORMATION
  Report Type: 
  Country: None (occurrence: None)
  Receive Date: 20110826
  Receipt Date: 20110822
  Transmission Date: 20111222
  Serious: Yes (Death)
  Sender: FDA-Public Use
  Company Number: GR-B.I. PHARMACEUTICALS,INC./RIDGEFIELD-2011-DE-04708GD

PATIENT
  Sex: Male

DRUGS (4)
  1. ASPIRIN [Suspect]
     Indication: ANTICOAGULANT THERAPY
     Dosage: 100 MG
  2. INSULIN [Concomitant]
     Indication: DIABETES MELLITUS
  3. DIPYRIDAMOLE [Suspect]
     Indication: ISCHAEMIC STROKE
     Dosage: 150 MG
  4. SINTROM [Suspect]
     Indication: ANTICOAGULANT THERAPY
     Dosage: AIMING AT AN INTERNATIONAL NORMALIZED RATIO OF 2.5 TO 3.5
     Route: 048

REACTIONS (1)
  - CEREBRAL HAEMORRHAGE [None]
